FAERS Safety Report 5297629-8 (Version None)
Quarter: 2007Q2

REPORT INFORMATION
  Report Type: 
  Country: None (occurrence: None)
  Receive Date: 20070416
  Receipt Date: 20070410
  Transmission Date: 20071010
  Serious: Yes (Hospitalization)
  Sender: FDA-Public Use
  Company Number: JP-ROCHE-487934

PATIENT
  Age: 76 Year
  Sex: Male

DRUGS (8)
  1. TICLOPIDINE HCL [Suspect]
     Indication: CEREBRAL INFARCTION
     Route: 048
     Dates: start: 20010615, end: 20070209
  2. LUPRAC [Concomitant]
     Indication: CARDIAC FAILURE
     Route: 048
     Dates: start: 20070113
  3. ASPIRIN [Concomitant]
     Route: 048
     Dates: start: 20070210
  4. TANATRIL [Concomitant]
     Indication: CARDIAC FAILURE
     Route: 048
     Dates: start: 20070126
  5. ADALAT [Concomitant]
     Indication: HYPERTENSION
     Route: 048
     Dates: start: 20010615, end: 20070117
  6. BUFFERIN [Concomitant]
     Route: 048
     Dates: start: 20010615, end: 20070209
  7. SERMION [Concomitant]
     Route: 048
     Dates: start: 20010615, end: 20070209
  8. LIPITOR [Concomitant]
     Indication: HYPERLIPIDAEMIA
     Route: 048
     Dates: start: 20010615, end: 20070209

REACTIONS (1)
  - INTERSTITIAL LUNG DISEASE [None]
